FAERS Safety Report 14852072 (Version 2)
Quarter: 2022Q2

REPORT INFORMATION
  Report Type: Spontaneous
  Country: US (occurrence: US)
  Receive Date: 20180507
  Receipt Date: 20220523
  Transmission Date: 20220721
  Serious: Yes (Other)
  Sender: FDA-Public Use
  Company Number: US-AUROBINDO-AUR-APL-2018-023810

PATIENT
  Age: 17 Year
  Sex: Male

DRUGS (2)
  1. CLONIDINE [Suspect]
     Active Substance: CLONIDINE
     Indication: Product used for unknown indication
     Dosage: 15-25 TABLETS
     Route: 065
  2. DEXTROAMPHETAMINE [Suspect]
     Active Substance: DEXTROAMPHETAMINE
     Indication: Self-injurious ideation
     Dosage: 15-25 TABLETS
     Route: 065

REACTIONS (10)
  - Posterior reversible encephalopathy syndrome [Unknown]
  - Hypertensive emergency [Unknown]
  - Bradycardia [Unknown]
  - Confusional state [Unknown]
  - Headache [Recovering/Resolving]
  - Photophobia [Unknown]
  - Nausea [Recovering/Resolving]
  - Fatigue [Unknown]
  - Overdose [Unknown]
  - Self-injurious ideation [Unknown]
